FAERS Safety Report 8305440 (Version 2)
Quarter: 2018Q4

REPORT INFORMATION
  Report Type: Spontaneous
  Country: US (occurrence: US)
  Receive Date: 20111221
  Receipt Date: 20181015
  Transmission Date: 20190205
  Serious: Yes (Life-Threatening, Hospitalization)
  Sender: FDA-Public Use
  Company Number: US-BAYER-2011-119508

PATIENT
  Sex: Male

DRUGS (1)
  1. BAYER ASPIRIN REGIMEN REGULAR 325 MG STRENGTH [Suspect]
     Active Substance: ASPIRIN
     Indication: BACK PAIN
     Dosage: 1000 MG, UNK
     Route: 048

REACTIONS (4)
  - Pain [None]
  - Cerebrovascular accident [None]
  - Blood pressure immeasurable [None]
  - Brain death [None]
